FAERS Safety Report 4944041-4 (Version None)
Quarter: 2006Q1

REPORT INFORMATION
  Report Type: 
  Country: None (occurrence: None)
  Receive Date: 20060315
  Receipt Date: 20060302
  Transmission Date: 20060701
  Serious: Yes (Other)
  Sender: FDA-Public Use
  Company Number: PHEH2006US02836

PATIENT
  Age: 57 Year
  Sex: Female
  Weight: 78.004 kg

DRUGS (3)
  1. FEMARA [Suspect]
     Indication: BREAST CANCER METASTATIC
     Dosage: 2.5 MG, QD
     Route: 048
     Dates: start: 20050101
  2. THYROID TAB [Concomitant]
     Indication: THYROID DISORDER
     Dosage: UNK, UNK
     Dates: start: 19840101
  3. VITAMINS [Concomitant]

REACTIONS (13)
  - ANXIETY [None]
  - BLOOD URINE PRESENT [None]
  - CONDITION AGGRAVATED [None]
  - DISTURBANCE IN ATTENTION [None]
  - FATIGUE [None]
  - HAEMORRHAGE URINARY TRACT [None]
  - HOT FLUSH [None]
  - INFLUENZA [None]
  - MEMORY IMPAIRMENT [None]
  - MYOFASCIAL PAIN SYNDROME [None]
  - POOR QUALITY SLEEP [None]
  - RENAL CELL CARCINOMA STAGE UNSPECIFIED [None]
  - WEIGHT DECREASED [None]
